FAERS Safety Report 9445728 (Version 6)
Quarter: 2014Q4

REPORT INFORMATION
  Report Type: Report from Study
  Country: US (occurrence: US)
  Receive Date: 20130807
  Receipt Date: 20141031
  Transmission Date: 20150529
  Serious: Yes (Death, Hospitalization, Other)
  Sender: FDA-Public Use
  Company Number: US-BRISTOL-MYERS SQUIBB COMPANY-19156843

PATIENT
  Age: 50 Year
  Sex: Female
  Weight: 120.9 kg

DRUGS (3)
  1. HEPARIN [Concomitant]
     Active Substance: HEPARIN SODIUM
  2. IPILIMUMAB [Suspect]
     Active Substance: IPILIMUMAB
     Indication: MALIGNANT MELANOMA
     Dosage: LAST ADMIN:19JUN13?COURSE:3?TOTAL DOSE:1240MG
     Route: 042
     Dates: start: 20130508, end: 20130731
  3. ENOXAPARIN [Concomitant]
     Active Substance: ENOXAPARIN

REACTIONS (11)
  - Nausea [Unknown]
  - Stomatitis [Not Recovered/Not Resolved]
  - Urinary tract infection [Not Recovered/Not Resolved]
  - Dehydration [Unknown]
  - Urinary incontinence [Not Recovered/Not Resolved]
  - Encephalopathy [Unknown]
  - Cerebral venous thrombosis [Unknown]
  - Acute kidney injury [Unknown]
  - Respiratory failure [Fatal]
  - Sepsis [Not Recovered/Not Resolved]
  - Hypothyroidism [Unknown]

NARRATIVE: CASE EVENT DATE: 20130715
